FAERS Safety Report 9398336 (Version 2)
Quarter: 2013Q3

REPORT INFORMATION
  Report Type: Spontaneous
  Country: GB (occurrence: GB)
  Receive Date: 20130712
  Receipt Date: 20130726
  Transmission Date: 20140515
  Serious: Yes (Other)
  Sender: FDA-Public Use
  Company Number: GB-GLAXOSMITHKLINE-B0906488A

PATIENT
  Age: 70 Year
  Sex: Male

DRUGS (4)
  1. COMBODART [Suspect]
     Indication: BENIGN PROSTATIC HYPERPLASIA
     Route: 065
     Dates: start: 201211
  2. LERCANIDIPINE [Suspect]
     Indication: PRODUCT USED FOR UNKNOWN INDICATION
     Dosage: 20MG PER DAY
     Route: 065
  3. RAMIPRIL [Suspect]
     Indication: PRODUCT USED FOR UNKNOWN INDICATION
     Dosage: 10MG PER DAY
     Route: 065
  4. SIMVASTATIN [Concomitant]
     Dosage: 40MG PER DAY

REACTIONS (11)
  - Electrocardiogram QRS complex prolonged [Recovering/Resolving]
  - Palpitations [Recovering/Resolving]
  - Heart rate increased [Recovering/Resolving]
  - Heart rate decreased [Recovering/Resolving]
  - Ventricular extrasystoles [Recovering/Resolving]
  - Tachycardia [Recovering/Resolving]
  - Atrioventricular dissociation [Recovering/Resolving]
  - Blood pressure systolic increased [Recovering/Resolving]
  - Polyuria [Recovering/Resolving]
  - Chest discomfort [Recovering/Resolving]
  - Drug interaction [Unknown]
